FAERS Safety Report 15243532 (Version 3)
Quarter: 2018Q3

REPORT INFORMATION
  Report Type: Spontaneous
  Country: US (occurrence: US)
  Receive Date: 20180806
  Receipt Date: 20180829
  Transmission Date: 20181010
  Serious: No
  Sender: FDA-Public Use
  Company Number: US-VERTEX PHARMACEUTICALS-2018-005446

PATIENT
  Sex: Female

DRUGS (4)
  1. KALYDECO [Suspect]
     Active Substance: IVACAFTOR
     Dosage: UNK UNK, QD
     Route: 048
     Dates: end: 2018
  2. NITROFURANTOIN. [Concomitant]
     Active Substance: NITROFURANTOIN
  3. KALYDECO [Suspect]
     Active Substance: IVACAFTOR
     Indication: CYSTIC FIBROSIS
     Dosage: 150 MG, BID
     Route: 048
     Dates: start: 20170927
  4. FLUCONAZOLE. [Concomitant]
     Active Substance: FLUCONAZOLE

REACTIONS (2)
  - Poor quality sleep [Not Recovered/Not Resolved]
  - Muscle fatigue [Not Recovered/Not Resolved]
